FAERS Safety Report 9290147 (Version 1)
Quarter: 2013Q2

REPORT INFORMATION
  Report Type: Spontaneous
  Country: US (occurrence: US)
  Receive Date: 20130515
  Receipt Date: 20130515
  Transmission Date: 20140414
  Serious: No
  Sender: FDA-Public Use
  Company Number: US-OPTIMER PHARMACEUTICALS, INC.-20120055

PATIENT
  Age: 53 Year
  Sex: Female

DRUGS (4)
  1. DIFICID [Suspect]
     Indication: CLOSTRIDIAL INFECTION
     Dosage: 200 MG, BID
     Route: 048
     Dates: start: 20120404, end: 201204
  2. ALBUTEROL [Concomitant]
     Indication: ASTHMA
  3. LEVOXYL [Concomitant]
     Indication: HYPOTHYROIDISM
  4. LORATADINE [Concomitant]
     Indication: SEASONAL ALLERGY

REACTIONS (4)
  - Eyelid oedema [Recovered/Resolved]
  - Lip swelling [Recovered/Resolved]
  - Oedema mouth [Recovered/Resolved]
  - Pruritus [Recovered/Resolved]
